FAERS Safety Report 19200175 (Version 3)
Quarter: 2022Q2

REPORT INFORMATION
  Report Type: Spontaneous
  Country: DE (occurrence: DE)
  Receive Date: 20210430
  Receipt Date: 20220414
  Transmission Date: 20220720
  Serious: Yes (Death, Other)
  Sender: FDA-Public Use
  Company Number: None

PATIENT
  Age: 35 Year
  Sex: Female
  Weight: 80 kg

DRUGS (5)
  1. INDAPAMIDE\PERINDOPRIL ARGININE [Interacting]
     Active Substance: INDAPAMIDE\PERINDOPRIL ARGININE
     Indication: Hypertensive crisis
     Dosage: 5 MG / 1,25 MG 1-0-0-0
     Route: 048
     Dates: start: 20140913
  2. METOPROLOL SUCCINATE [Interacting]
     Active Substance: METOPROLOL SUCCINATE
     Indication: Hypertensive crisis
     Dosage: 23,5 MG 1-0-0-0
     Route: 048
     Dates: start: 20140913
  3. PROMETHAZINE [Interacting]
     Active Substance: PROMETHAZINE HYDROCHLORIDE
     Indication: Acute psychosis
     Dosage: 25 MG
     Route: 048
     Dates: start: 20200731
  4. QUETIAPINE [Interacting]
     Active Substance: QUETIAPINE
     Indication: Acute psychosis
     Dosage: 300 MG 0-0-0-1
     Route: 048
  5. AMISULPRIDE [Interacting]
     Active Substance: AMISULPRIDE
     Indication: Anxiety
     Dosage: 100 MG 1-0-1
     Route: 048
     Dates: start: 20200731

REACTIONS (2)
  - Drug interaction [Unknown]
  - Multiple organ dysfunction syndrome [Fatal]
